FAERS Safety Report 4699803-8 (Version None)
Quarter: 2005Q2

REPORT INFORMATION
  Report Type: 
  Country: None (occurrence: None)
  Receive Date: 20050623
  Receipt Date: 20050613
  Transmission Date: 20051028
  Serious: Yes (Life-Threatening, Hospitalization, Other)
  Sender: FDA-Public Use
  Company Number: 2005003387

PATIENT
  Age: 59 Year
  Sex: Male
  Weight: 71.2147 kg

DRUGS (1)
  1. NEURONTIN [Suspect]
     Indication: RESTLESS LEGS SYNDROME
     Dates: start: 19990311

REACTIONS (16)
  - CERVICAL VERTEBRAL FRACTURE [None]
  - CONJUNCTIVITIS [None]
  - CORNEAL ULCER [None]
  - DIFFICULT TO WEAN FROM VENTILATOR [None]
  - DRUG INEFFECTIVE [None]
  - DYSPHAGIA [None]
  - EAR CANAL INJURY [None]
  - FRACTURE [None]
  - GLASGOW COMA SCALE ABNORMAL [None]
  - GUN SHOT WOUND [None]
  - MASTOID DISORDER [None]
  - PNEUMONIA HAEMOPHILUS [None]
  - SELF INJURIOUS BEHAVIOUR [None]
  - SUBDURAL HAEMATOMA [None]
  - SUBDURAL HYGROMA [None]
  - SUICIDE ATTEMPT [None]
